FAERS Safety Report 8385637-X (Version None)
Quarter: 2012Q2

REPORT INFORMATION
  Report Type: 
  Country: None (occurrence: None)
  Receive Date: 20120525
  Receipt Date: 20120523
  Transmission Date: 20120825
  Serious: No
  Sender: FDA-Public Use
  Company Number: US-PFIZER INC-2012124918

PATIENT
  Sex: Male
  Weight: 95.238 kg

DRUGS (4)
  1. WELCHOL [Concomitant]
     Indication: BLOOD CHOLESTEROL INCREASED
     Dosage: 1875 MG, 2X/DAY
  2. CELEBREX [Suspect]
     Indication: BACK PAIN
     Dosage: 200 MG, AS NEEDED
  3. ZETIA [Concomitant]
     Indication: BLOOD CHOLESTEROL INCREASED
     Dosage: 10 MG,DAILY
  4. LISINOPRIL [Concomitant]
     Indication: BLOOD PRESSURE ABNORMAL
     Dosage: 20 MG, 2X/DAY

REACTIONS (1)
  - BLOOD PRESSURE INCREASED [None]
